FAERS Safety Report 5854919-5 (Version None)
Quarter: 2008Q3

REPORT INFORMATION
  Report Type: 
  Country: None (occurrence: None)
  Receive Date: 20080822
  Receipt Date: 20080317
  Transmission Date: 20090109
  Serious: No
  Sender: FDA-Public Use
  Company Number: US-ABBOTT-08P-163-0442864-00

PATIENT
  Sex: Female
  Weight: 72.64 kg

DRUGS (2)
  1. SYNTHROID [Suspect]
     Indication: HYPOTHYROIDISM
     Route: 048
     Dates: start: 20080201, end: 20080201
  2. SYNTHROID [Suspect]
     Indication: HYPOTHYROIDISM
     Route: 048
     Dates: start: 20080305

REACTIONS (7)
  - ALOPECIA [None]
  - DRY SKIN [None]
  - INSOMNIA [None]
  - MENSTRUATION IRREGULAR [None]
  - MOOD ALTERED [None]
  - PERIPHERAL COLDNESS [None]
  - WEIGHT INCREASED [None]
